FAERS Safety Report 9734284 (Version 2)
Quarter: 2014Q1

REPORT INFORMATION
  Report Type: Spontaneous
  Country: IR (occurrence: IR)
  Receive Date: 20131205
  Receipt Date: 20140109
  Transmission Date: 20141002
  Serious: Yes (Other)
  Sender: FDA-Public Use
  Company Number: IR-ROCHE-1314146

PATIENT
  Age: 80 Year
  Sex: Male

DRUGS (1)
  1. ACTILYSE [Suspect]
     Indication: ISCHAEMIC STROKE
     Route: 042

REACTIONS (4)
  - Hypersensitivity [Unknown]
  - Haemorrhage intracranial [Unknown]
  - Skin discolouration [Recovered/Resolved]
  - Local swelling [Recovered/Resolved]
